FAERS Safety Report 20038030 (Version 3)
Quarter: 2021Q4

REPORT INFORMATION
  Report Type: Report from Study
  Country: IT (occurrence: IT)
  Receive Date: 20211105
  Receipt Date: 20211216
  Transmission Date: 20220303
  Serious: Yes (Hospitalization)
  Sender: FDA-Public Use
  Company Number: IT-ORG-100000132-2021-IT-000003

PATIENT
  Age: 59 Year
  Sex: Male
  Weight: 62.5 kg

DRUGS (11)
  1. RILUZOLE [Suspect]
     Active Substance: RILUZOLE
     Indication: Amyotrophic lateral sclerosis
     Dosage: 100 MILLIGRAM, QD
     Route: 048
     Dates: start: 20161101
  2. MASITINIB [Suspect]
     Active Substance: MASITINIB
     Indication: Amyotrophic lateral sclerosis
     Dosage: 400 MILLIGRAM, QD
     Route: 048
     Dates: start: 20180512, end: 20210728
  3. PAROXETINE [Concomitant]
     Active Substance: PAROXETINE
     Indication: Depression
     Dosage: 20 MILLIGRAM, QD
     Route: 048
  4. PRAMIPEXOLE [Concomitant]
     Active Substance: PRAMIPEXOLE
     Dosage: 150 MICROGRAM
     Route: 048
  5. PRAMIPEXOLE [Concomitant]
     Active Substance: PRAMIPEXOLE
     Dosage: UNK, QD
     Route: 048
  6. PREGABALIN [Concomitant]
     Active Substance: PREGABALIN
     Indication: Anxiety
     Dosage: 100 MILLIGRAM, QD
     Route: 048
  7. TIZANIDINE [Concomitant]
     Active Substance: TIZANIDINE
     Indication: Muscle spasticity
     Dosage: 4 MILLIGRAM
     Route: 048
  8. ALBUTEROL [Concomitant]
     Active Substance: ALBUTEROL
     Dosage: WHEN NEEDED
  9. BECLOMETHASONE DIPROPIONATE [Concomitant]
     Active Substance: BECLOMETHASONE DIPROPIONATE
     Dosage: AS NEEDED
  10. PROMAZINE [Concomitant]
     Active Substance: PROMAZINE
     Indication: Depression
     Dosage: 65 GTT DROPS
     Route: 048
  11. AMITRIPTYLINE [Concomitant]
     Active Substance: AMITRIPTYLINE
     Indication: Depression
     Dosage: 6 GTT DROPS
     Route: 048

REACTIONS (4)
  - Troponin increased [Unknown]
  - Pneumonia [Recovering/Resolving]
  - Myocarditis [Recovering/Resolving]
  - Pericarditis [Recovering/Resolving]

NARRATIVE: CASE EVENT DATE: 20210728
